FAERS Safety Report 9843023 (Version 1)
Quarter: 2013Q4

REPORT INFORMATION
  Report Type: Spontaneous
  Country: US (occurrence: None)
  Receive Date: 20131223
  Receipt Date: 20131223
  Transmission Date: 20140711
  Serious: No
  Sender: FDA-Public Use
  Company Number: 219022LEO

PATIENT
  Sex: Female

DRUGS (1)
  1. PICATO (0.015 %, GEL) [Suspect]
     Indication: ACTINIC KERATOSIS
     Dates: start: 20120912, end: 20120921

REACTIONS (4)
  - Application site burn [None]
  - Application site vesicles [None]
  - Application site ulcer [None]
  - Inappropriate schedule of drug administration [None]
